FAERS Safety Report 8216255-1 (Version None)
Quarter: 2012Q1

REPORT INFORMATION
  Report Type: 
  Country: None (occurrence: None)
  Receive Date: 20120316
  Receipt Date: 20120228
  Transmission Date: 20120608
  Serious: Yes (Hospitalization, Disabling)
  Sender: FDA-Public Use
  Company Number: US-AMGEN-USASP2012013027

PATIENT
  Age: 56 Year
  Sex: Female

DRUGS (6)
  1. TREXALL [Concomitant]
     Dates: start: 20000101
  2. ENBREL [Suspect]
  3. HUMIRA [Concomitant]
  4. METHOTREXATE (TREXALL) [Concomitant]
     Dates: start: 20000101
  5. ENBREL [Suspect]
     Indication: RHEUMATOID ARTHRITIS
     Dosage: 50 MG, QWK
     Dates: start: 20021206
  6. CELEBREX [Concomitant]

REACTIONS (11)
  - HAEMOGLOBIN DECREASED [None]
  - WHEELCHAIR USER [None]
  - PALLOR [None]
  - WHITE BLOOD CELL COUNT DECREASED [None]
  - INJECTION SITE PAIN [None]
  - MUSCULOSKELETAL PAIN [None]
  - ABDOMINAL DISCOMFORT [None]
  - HYPOTENSION [None]
  - RHEUMATOID ARTHRITIS [None]
  - JOINT DESTRUCTION [None]
  - RED BLOOD CELL COUNT DECREASED [None]
